FAERS Safety Report 4455902-7 (Version None)
Quarter: 2004Q3

REPORT INFORMATION
  Report Type: 
  Country: None (occurrence: None)
  Receive Date: 20040920
  Receipt Date: 20040910
  Transmission Date: 20050211
  Serious: Yes (Death)
  Sender: FDA-Public Use
  Company Number: 2004-DE-04664GD

PATIENT
  Age: 74 Year
  Sex: Female

DRUGS (10)
  1. METHOTREXATE [Suspect]
     Indication: RHEUMATOID ARTHRITIS
  2. LEFLUNOMIDE [Suspect]
     Indication: RHEUMATOID ARTHRITIS
  3. HYDROXYCHLOROQUINE SULFATE [Suspect]
     Indication: RHEUMATOID ARTHRITIS
  4. SULFASALAZINE [Suspect]
     Indication: RHEUMATOID ARTHRITIS
  5. METHYLPREDNISOLONE [Concomitant]
  6. DILTIAZEM (DILTIAZEM)  (IPRATROPIUM-BR) [Concomitant]
  7. METOPROLOL TARTRATE [Concomitant]
  8. PREDNISOLONE [Concomitant]
  9. PAROXETINE HCL [Concomitant]
  10. OMEPRAZOLE [Concomitant]

REACTIONS (1)
  - PANCYTOPENIA [None]
